FAERS Safety Report 12224490 (Version 2)
Quarter: 2016Q2

REPORT INFORMATION
  Report Type: Spontaneous
  Country: US (occurrence: US)
  Receive Date: 20160331
  Receipt Date: 20160401
  Transmission Date: 20160815
  Serious: No
  Sender: FDA-Public Use
  Company Number: US-HORIZON-RAV-0065-2016

PATIENT
  Age: 2 Year
  Weight: 14.2 kg

DRUGS (4)
  1. RAVICTI [Suspect]
     Active Substance: GLYCEROL PHENYLBUTYRATE
     Indication: ARGININOSUCCINATE SYNTHETASE DEFICIENCY
     Dosage: 2.5 ML TID WHEN WELL AND 3 ML TID WHEN ILL
     Dates: start: 20151208
  2. PROTEIN [Concomitant]
     Active Substance: PROTEIN
     Dosage: 4 G
  3. CYCLINEX 35 [Concomitant]
  4. ARGININE [Concomitant]
     Active Substance: ARGININE

REACTIONS (2)
  - Irritability [Recovered/Resolved]
  - Vomiting projectile [Recovered/Resolved]

NARRATIVE: CASE EVENT DATE: 20160326
